FAERS Safety Report 21094830 (Version 1)
Quarter: 2022Q3

REPORT INFORMATION
  Report Type: Spontaneous
  Country: JP (occurrence: JP)
  Receive Date: 20220718
  Receipt Date: 20220718
  Transmission Date: 20221026
  Serious: Yes (Death, Other)
  Sender: FDA-Public Use
  Company Number: JP-BAXTER-2022BAX013912

PATIENT
  Age: 69 Year
  Sex: Male

DRUGS (6)
  1. REGUNEAL LCA [Suspect]
     Active Substance: CALCIUM CHLORIDE\DEXTROSE MONOHYDRATE\HYDROCHLORIC ACID\MAGNESIUM CHLORIDE\SODIUM BICARBONATE\SODIUM
     Indication: Peritoneal dialysis
     Dosage: 1500 ML, 3 CYCLES,  2 BAGS PER DAY
     Route: 033
     Dates: start: 20200728
  2. REGUNEAL LCA [Suspect]
     Active Substance: CALCIUM CHLORIDE\DEXTROSE MONOHYDRATE\HYDROCHLORIC ACID\MAGNESIUM CHLORIDE\SODIUM BICARBONATE\SODIUM
     Indication: Chronic kidney disease
  3. DARBEPOETIN ALFA [Concomitant]
     Active Substance: DARBEPOETIN ALFA
     Indication: Nephrogenic anaemia
     Dosage: UNK
     Route: 058
  4. FERRIC CITRATE ANHYDROUS [Concomitant]
     Active Substance: FERRIC CITRATE ANHYDROUS
     Indication: Hyperphosphataemia
     Route: 048
  5. FUROSEMIDE [Concomitant]
     Active Substance: FUROSEMIDE
     Indication: Oedema
     Route: 048
  6. EVOCALCET [Concomitant]
     Active Substance: EVOCALCET
     Indication: Product used for unknown indication
     Route: 048

REACTIONS (7)
  - Sudden cardiac death [Fatal]
  - Cardiac arrest [Unknown]
  - Loss of consciousness [Unknown]
  - Dizziness [Unknown]
  - Malaise [Unknown]
  - Pyrexia [Unknown]
  - Anaemia [Unknown]

NARRATIVE: CASE EVENT DATE: 20220618
